FAERS Safety Report 9613025 (Version 3)
Quarter: 2014Q2

REPORT INFORMATION
  Report Type: Report from Study
  Country: IE (occurrence: IE)
  Receive Date: 20131010
  Receipt Date: 20140411
  Transmission Date: 20141212
  Serious: Yes (Hospitalization)
  Sender: FDA-Public Use
  Company Number: IE-ABBVIE-13P-229-1133350-00

PATIENT
  Age: 33 Year
  Sex: Male
  Weight: 86.8 kg

DRUGS (5)
  1. HUMIRA [Suspect]
     Indication: COLITIS ULCERATIVE
     Dosage: BASELINE
     Route: 058
     Dates: start: 20130617, end: 20130617
  2. HUMIRA [Suspect]
     Dosage: WEEK 2
     Route: 058
     Dates: start: 20130704, end: 20130704
  3. HUMIRA [Suspect]
     Route: 058
     Dates: end: 20130731
  4. ASACOLON [Concomitant]
     Indication: COLITIS ULCERATIVE
     Route: 048
     Dates: start: 20120411, end: 20130815
  5. LOMOTIL [Concomitant]
     Indication: COLITIS ULCERATIVE
     Route: 048

REACTIONS (1)
  - Colitis ulcerative [Recovered/Resolved]
